FAERS Safety Report 7371919-7 (Version None)
Quarter: 2011Q1

REPORT INFORMATION
  Report Type: 
  Country: None (occurrence: None)
  Receive Date: 20110324
  Receipt Date: 20110314
  Transmission Date: 20110831
  Serious: Yes (Hospitalization)
  Sender: FDA-Public Use
  Company Number: NL-SANOFI-AVENTIS-2011SA016502

PATIENT
  Age: 71 Year
  Sex: Female

DRUGS (10)
  1. ESOMEPRAZOLE [Concomitant]
  2. OXALIPLATIN [Suspect]
     Route: 042
     Dates: start: 20100413, end: 20100413
  3. ASPIRIN [Concomitant]
  4. HYDROCHLOROTHIAZIDE [Concomitant]
  5. BEVACIZUMAB [Suspect]
     Route: 042
  6. OXALIPLATIN [Suspect]
     Route: 042
  7. BEVACIZUMAB [Suspect]
     Indication: COLORECTAL CANCER
     Route: 042
     Dates: start: 20100413, end: 20100413
  8. CAPECITABINE [Suspect]
     Indication: COLORECTAL CANCER
     Route: 048
     Dates: start: 20100413
  9. DURAGESIC-50 [Concomitant]
  10. DILTIAZEM HCL [Concomitant]

REACTIONS (1)
  - CHOLANGITIS [None]
